FAERS Safety Report 5456501-0 (Version None)
Quarter: 2007Q3

REPORT INFORMATION
  Report Type: 
  Country: None (occurrence: None)
  Receive Date: 20070918
  Receipt Date: 20070716
  Transmission Date: 20080115
  Serious: Yes (Hospitalization)
  Sender: FDA-Public Use
  Company Number: US-ASTRAZENECA-2006UW25227

PATIENT
  Age: 491 Month
  Sex: Male
  Weight: 109.1 kg

DRUGS (7)
  1. SEROQUEL [Suspect]
     Indication: DEPRESSION
     Route: 048
     Dates: start: 20000601
  2. ABILIFY [Concomitant]
  3. GEODON [Concomitant]
  4. THORAZINE [Concomitant]
  5. ZYPREXA [Concomitant]
  6. RISPERDAL [Concomitant]
     Dates: start: 20010101
  7. RISPERDAL [Concomitant]
     Dates: start: 20010101

REACTIONS (2)
  - DEPRESSION [None]
  - DIABETES MELLITUS [None]
